FAERS Safety Report 7466371-7 (Version None)
Quarter: 2011Q2

REPORT INFORMATION
  Report Type: 
  Country: None (occurrence: None)
  Receive Date: 20110509
  Receipt Date: 20100811
  Transmission Date: 20111010
  Serious: No
  Sender: FDA-Public Use
  Company Number: US-ALEXION-A201000966

PATIENT
  Sex: Male

DRUGS (14)
  1. ALLOPURINOL [Concomitant]
     Indication: RENAL DISORDER
     Dosage: 100 MG, QD
     Route: 048
  2. LOVAZA [Concomitant]
     Indication: BLOOD CHOLESTEROL INCREASED
     Dosage: 3600 MG, QAM
     Route: 048
  3. VITAMIN E                          /00110501/ [Concomitant]
     Dosage: UNK
  4. AMLODIPINE BESYLATE [Concomitant]
     Indication: HYPERTENSION
     Dosage: 5 MG, QD
     Route: 048
  5. PREVACID [Concomitant]
     Indication: GASTROOESOPHAGEAL REFLUX DISEASE
     Dosage: UNK
     Route: 048
  6. LOVAZA [Concomitant]
     Dosage: 2400 MG, QHS
     Route: 048
  7. PRAZOSIN HCL [Concomitant]
     Indication: BLOOD PRESSURE INCREASED
  8. CYCLOSPORINE [Concomitant]
     Indication: PLATELET COUNT
     Dosage: 12 MG, BID
  9. FOLIC ACID [Concomitant]
     Indication: ANAEMIA
     Dosage: 1 MG, QD
     Route: 048
  10. FLUTICASONE PROPIONATE [Concomitant]
     Indication: SINUS DISORDER
     Dosage: UNK
  11. MAGNESIUM [Concomitant]
     Dosage: 500 MG, QD
     Route: 048
  12. GLIPIZIDE [Concomitant]
     Indication: BLOOD GLUCOSE INCREASED
     Dosage: 10 MG, QD
     Route: 048
  13. PRAZOSIN HCL [Concomitant]
     Indication: BENIGN PROSTATIC HYPERPLASIA
     Dosage: 5 MG, QD
     Route: 048
  14. SOLIRIS [Suspect]
     Indication: PAROXYSMAL NOCTURNAL HAEMOGLOBINURIA
     Dosage: UNK
     Route: 042
     Dates: start: 20100125

REACTIONS (2)
  - THERAPEUTIC RESPONSE UNEXPECTED [None]
  - CHILLS [None]
